FAERS Safety Report 6930341-5 (Version None)
Quarter: 2010Q3

REPORT INFORMATION
  Report Type: 
  Country: None (occurrence: None)
  Receive Date: 20100813
  Receipt Date: 20100729
  Transmission Date: 20110219
  Serious: Yes (Other)
  Sender: FDA-Public Use
  Company Number: 7012810

PATIENT
  Age: 32 Year
  Sex: Male

DRUGS (1)
  1. REBIF [Suspect]
     Indication: PRIMARY PROGRESSIVE MULTIPLE SCLEROSIS
     Dosage: 44 MCG, 3 IN 1 WK, SUBCUTANEOUS
     Route: 058
     Dates: start: 20100201

REACTIONS (3)
  - OFF LABEL USE [None]
  - PAIN [None]
  - UMBILICAL HERNIA REPAIR [None]
